FAERS Safety Report 25963447 (Version 1)
Quarter: 2025Q4

REPORT INFORMATION
  Report Type: Spontaneous
  Country: US (occurrence: None)
  Receive Date: 20251024
  Receipt Date: 20251024
  Transmission Date: 20260117
  Serious: Yes (Death)
  Sender: FDA-CTU
  Company Number: None

PATIENT
  Age: 64 Year
  Sex: Male

DRUGS (1)
  1. PIRFENIDONE [Suspect]
     Active Substance: PIRFENIDONE
     Indication: Idiopathic pulmonary fibrosis
     Dosage: 801 MG 3 TIMES A DAY ORAL
     Route: 048
     Dates: start: 20240124

REACTIONS (2)
  - Interstitial lung disease [None]
  - Disease progression [None]

NARRATIVE: CASE EVENT DATE: 20250825
